FAERS Safety Report 9209238 (Version 1)
Quarter: 2013Q2

REPORT INFORMATION
  Report Type: Spontaneous
  Country: US (occurrence: US)
  Receive Date: 20130404
  Receipt Date: 20130404
  Transmission Date: 20140414
  Serious: No
  Sender: FDA-Public Use
  Company Number: US-ASTRAZENECA-2013SE18769

PATIENT
  Sex: 0

DRUGS (1)
  1. PRILOSEC [Suspect]
     Dosage: DOSE UNKNOWN, BID
     Route: 048

REACTIONS (2)
  - Ulcer [Unknown]
  - Gastrooesophageal reflux disease [Unknown]
